FAERS Safety Report 16693147 (Version 1)
Quarter: 2019Q3

REPORT INFORMATION
  Report Type: Spontaneous
  Country: JP (occurrence: US)
  Receive Date: 20190812
  Receipt Date: 20190812
  Transmission Date: 20191004
  Serious: Yes (Hospitalization)
  Sender: FDA-Public Use
  Company Number: JP-JNJFOC-20190810954

PATIENT
  Age: 18 Month
  Sex: Female

DRUGS (1)
  1. DUROTEP [Suspect]
     Active Substance: FENTANYL
     Indication: PRODUCT USED FOR UNKNOWN INDICATION
     Route: 065

REACTIONS (6)
  - Off label use [Unknown]
  - Product use issue [Unknown]
  - Nasopharyngitis [Unknown]
  - Pyrexia [Unknown]
  - Toxicity to various agents [Unknown]
  - Sleep apnoea syndrome [Unknown]
